FAERS Safety Report 4679044-0 (Version None)
Quarter: 2005Q2

REPORT INFORMATION
  Report Type: 
  Country: None (occurrence: None)
  Receive Date: 20050527
  Receipt Date: 20050516
  Transmission Date: 20051028
  Serious: Yes (Death)
  Sender: FDA-Public Use
  Company Number: 2004058040

PATIENT
  Age: 41 Year
  Sex: Male

DRUGS (4)
  1. NEURONTIN [Suspect]
     Indication: ANXIETY
     Dosage: 900 MG (300 MG, 3 IN 1 D), ORAL
     Dates: start: 20010902
  2. NEURONTIN [Suspect]
     Indication: BIPOLAR DISORDER
     Dosage: 900 MG (300 MG, 3 IN 1 D), ORAL
     Dates: start: 20010902
  3. NEURONTIN [Suspect]
     Indication: DEPRESSION
     Dosage: 900 MG (300 MG, 3 IN 1 D), ORAL
     Dates: start: 20010902
  4. REMERON [Concomitant]

REACTIONS (22)
  - AREFLEXIA [None]
  - BRAIN SCAN ABNORMAL [None]
  - COMPLETED SUICIDE [None]
  - COMPUTERISED TOMOGRAM ABNORMAL [None]
  - CORNEAL REFLEX DECREASED [None]
  - DRUG INEFFECTIVE [None]
  - EAR HAEMORRHAGE [None]
  - EPISTAXIS [None]
  - FALL [None]
  - GUN SHOT WOUND [None]
  - HEAD INJURY [None]
  - HEART RATE INCREASED [None]
  - HYPOTENSION [None]
  - INJURY [None]
  - MOUTH HAEMORRHAGE [None]
  - MOVEMENT DISORDER [None]
  - NERVOUS SYSTEM DISORDER [None]
  - OXYGEN SATURATION DECREASED [None]
  - PUPIL FIXED [None]
  - RESPIRATION ABNORMAL [None]
  - SKIN DISCOLOURATION [None]
  - TRAUMATIC BRAIN INJURY [None]
